FAERS Safety Report 5883783-3 (Version None)
Quarter: 2008Q3

REPORT INFORMATION
  Report Type: 
  Country: None (occurrence: None)
  Receive Date: 20080915
  Receipt Date: 20080904
  Transmission Date: 20090109
  Serious: Yes (Hospitalization, Other)
  Sender: FDA-Public Use
  Company Number: US-BRISTOL-MYERS SQUIBB COMPANY-14293294

PATIENT
  Age: 49 Year
  Sex: Male

DRUGS (8)
  1. ERBITUX [Suspect]
     Indication: ADENOCARCINOMA PANCREAS
     Dosage: LOAD744MG 465MG13MAY;20MAY 455MG28MAY,29MAY,05JUN,12JUN,10JUL,17JUL 453MG19JUN,26JUN,03JUL08
     Dates: start: 20080717, end: 20080717
  2. CYTOXAN [Suspect]
     Indication: ADENOCARCINOMA PANCREAS
     Dosage: MODULATIN DOSE: 465MG;05MAY08. 28MAY:455MG 18JUN:453MG
     Dates: start: 20080709, end: 20080709
  3. ALLOGENEIC PANCREATIC CANCER VACCINE [Suspect]
     Indication: ADENOCARCINOMA PANCREAS
     Dosage: TAKEN ON 06MAY08;29MAY08;19JUN08
     Dates: start: 20080710, end: 20080710
  4. TYLENOL (CAPLET) [Concomitant]
     Route: 048
  5. MOTRIN [Concomitant]
     Route: 048
  6. CREON [Concomitant]
     Dosage: BEFORE MEAL
     Route: 048
  7. COMPAZINE [Concomitant]
  8. OXYCODONE HCL [Concomitant]
     Route: 048

REACTIONS (7)
  - ASCITES [None]
  - CELLULITIS [None]
  - HYPERBILIRUBINAEMIA [None]
  - HYPOTENSION [None]
  - PLEURAL EFFUSION [None]
  - PULMONARY EMBOLISM [None]
  - PYREXIA [None]
